FAERS Safety Report 5114897-3 (Version None)
Quarter: 2006Q3

REPORT INFORMATION
  Report Type: 
  Country: None (occurrence: None)
  Receive Date: 20060926
  Receipt Date: 20060914
  Transmission Date: 20061208
  Serious: Yes (Hospitalization, Other)
  Sender: FDA-Public Use
  Company Number: CA-JNJFOC-20060903491

PATIENT
  Sex: Female
  Weight: 57.2 kg

DRUGS (9)
  1. REMICADE [Suspect]
  2. REMICADE [Suspect]
  3. REMICADE [Suspect]
     Indication: CROHN'S DISEASE
  4. CACO3 [Concomitant]
  5. DICLECTIN [Concomitant]
     Indication: NAUSEA
  6. VITAMIN D [Concomitant]
  7. SUPEUDOL [Concomitant]
  8. ATIVAN [Concomitant]
  9. ANTI-DEPRESSANT [Concomitant]

REACTIONS (3)
  - DRUG EXPOSURE DURING PREGNANCY [None]
  - NAUSEA [None]
  - SUICIDE ATTEMPT [None]
